FAERS Safety Report 5449080-5 (Version None)
Quarter: 2007Q3

REPORT INFORMATION
  Report Type: 
  Country: None (occurrence: None)
  Receive Date: 20070911
  Receipt Date: 20070827
  Transmission Date: 20080115
  Serious: Yes (Other)
  Sender: FDA-Public Use
  Company Number: US-AMGEN-KDL234211

PATIENT
  Sex: Female

DRUGS (19)
  1. PROCRIT [Suspect]
     Indication: RENAL FAILURE CHRONIC
     Route: 065
     Dates: start: 20030101, end: 20060426
  2. ATENOLOL [Concomitant]
     Route: 048
  3. MICARDIS [Concomitant]
     Route: 048
  4. NORVASC [Concomitant]
     Route: 048
  5. IRON SULFATETHIAMIN COMPOUND TAB [Concomitant]
     Route: 048
  6. LANTUS [Concomitant]
     Route: 058
  7. HEPARIN [Concomitant]
     Route: 058
  8. NEXIUM [Concomitant]
     Route: 048
  9. ZOCOR [Concomitant]
     Route: 048
  10. ZETIA [Concomitant]
     Route: 048
  11. NOVOLIN R [Concomitant]
  12. DILAUDID [Concomitant]
     Route: 042
  13. ZOFRAN [Concomitant]
     Route: 042
  14. VYTORIN [Concomitant]
     Route: 048
  15. STARLIX [Concomitant]
     Route: 048
  16. FLORINEF [Concomitant]
     Route: 048
  17. RENAGEL [Concomitant]
     Route: 048
  18. ZOLOFT [Concomitant]
     Route: 048
  19. BUMEX [Concomitant]
     Route: 065

REACTIONS (6)
  - DEPRESSED LEVEL OF CONSCIOUSNESS [None]
  - DYSARTHRIA [None]
  - HYPERSENSITIVITY [None]
  - PRURITUS [None]
  - RASH GENERALISED [None]
  - URTICARIA [None]
